FAERS Safety Report 6280320-9 (Version None)
Quarter: 2009Q3

REPORT INFORMATION
  Report Type: 
  Country: None (occurrence: None)
  Receive Date: 20090724
  Receipt Date: 20090720
  Transmission Date: 20100115
  Serious: Yes (Hospitalization)
  Sender: FDA-Public Use
  Company Number: US-BIOGENIDEC-2009BI014135

PATIENT
  Age: 68 Year
  Sex: Female
  Weight: 74 kg

DRUGS (6)
  1. TYSABRI [Suspect]
     Indication: MULTIPLE SCLEROSIS
     Route: 042
     Dates: start: 20080107
  2. NEXIUM [Concomitant]
  3. NABUMETONE [Concomitant]
  4. BACLOFEN [Concomitant]
  5. DYAZIDE [Concomitant]
     Indication: FIBROMYALGIA
  6. SAVELLA [Concomitant]
     Indication: FIBROMYALGIA

REACTIONS (2)
  - COLITIS [None]
  - WHITE BLOOD CELL COUNT INCREASED [None]
